FAERS Safety Report 24633039 (Version 2)
Quarter: 2024Q4

REPORT INFORMATION
  Report Type: Report from Study
  Country: US (occurrence: US)
  Receive Date: 20241118
  Receipt Date: 20241118
  Transmission Date: 20250115
  Serious: Yes (Other)
  Sender: ALEXION PHARMACEUTICALS
  Company Number: US-AstraZeneca-CH-00745672A

PATIENT

DRUGS (8)
  1. DANICOPAN [Suspect]
     Active Substance: DANICOPAN
     Dosage: UNK
     Route: 065
  2. DANICOPAN [Suspect]
     Active Substance: DANICOPAN
     Dosage: UNK
  3. DANICOPAN [Suspect]
     Active Substance: DANICOPAN
     Dosage: UNK
     Route: 065
  4. DANICOPAN [Suspect]
     Active Substance: DANICOPAN
     Dosage: UNK
  5. ULTOMIRIS [Suspect]
     Active Substance: RAVULIZUMAB-CWVZ
     Dosage: UNK
     Route: 065
  6. ULTOMIRIS [Suspect]
     Active Substance: RAVULIZUMAB-CWVZ
     Dosage: UNK
  7. ULTOMIRIS [Suspect]
     Active Substance: RAVULIZUMAB-CWVZ
     Dosage: UNK
     Route: 065
  8. ULTOMIRIS [Suspect]
     Active Substance: RAVULIZUMAB-CWVZ
     Dosage: UNK

REACTIONS (2)
  - Breakthrough haemolysis [Unknown]
  - Device issue [Unknown]
